FAERS Safety Report 5128697-1 (Version None)
Quarter: 2006Q4

REPORT INFORMATION
  Report Type: 
  Country: None (occurrence: None)
  Receive Date: 20061017
  Receipt Date: 20061013
  Transmission Date: 20070319
  Serious: Yes (Hospitalization)
  Sender: FDA-Public Use
  Company Number: CH-AVENTIS-200620723GDDC

PATIENT
  Age: 83 Year
  Sex: Male

DRUGS (6)
  1. MINIRIN [Suspect]
     Indication: STRESS URINARY INCONTINENCE
     Route: 045
     Dates: start: 20060401, end: 20060705
  2. SINEMET [Concomitant]
     Indication: PARKINSON'S DISEASE
     Route: 048
  3. FOLIC ACID [Concomitant]
     Indication: ANAEMIA FOLATE DEFICIENCY
     Route: 048
     Dates: start: 20060301, end: 20060724
  4. ALENDRONATE SODIUM [Concomitant]
     Indication: OSTEOPOROSIS
     Route: 048
     Dates: start: 20060301
  5. CALCIMAGON-D3 [Concomitant]
     Indication: OSTEOPOROSIS
     Route: 048
     Dates: start: 20060301
  6. DORZOLAMIDE HYDROCHLORIDE [Concomitant]
     Indication: GLAUCOMA
     Route: 047

REACTIONS (3)
  - BLOOD SODIUM DECREASED [None]
  - COGNITIVE DISORDER [None]
  - CONDITION AGGRAVATED [None]
